FAERS Safety Report 9456124 (Version 1)
Quarter: 2013Q3

REPORT INFORMATION
  Report Type: Spontaneous
  Country: US (occurrence: None)
  Receive Date: 20130812
  Receipt Date: 20130812
  Transmission Date: 20140515
  Serious: Yes (Death)
  Sender: FDA-Public Use
  Company Number: None

PATIENT
  Age: 70 Year
  Sex: Female

DRUGS (1)
  1. XELODA [Suspect]
     Indication: GENITOURINARY TRACT NEOPLASM
     Dosage: 500MG  2 TABS 2 TIMES/DAY ORAL
     Route: 048
     Dates: start: 20130510, end: 20130723

REACTIONS (1)
  - Death [None]
